FAERS Safety Report 9687523 (Version 1)
Quarter: 2013Q4

REPORT INFORMATION
  Report Type: Spontaneous
  Country: US (occurrence: US)
  Receive Date: 20131114
  Receipt Date: 20131114
  Transmission Date: 20140711
  Serious: No
  Sender: FDA-Public Use
  Company Number: US-009507513-1311USA004325

PATIENT
  Sex: Female

DRUGS (1)
  1. NEXPLANON [Suspect]
     Indication: CONTRACEPTION
     Dosage: UNSPECIFIED LOCATION OF HER ARM
     Route: 059
     Dates: start: 201309

REACTIONS (3)
  - Contusion [Unknown]
  - Pain [Unknown]
  - Rash erythematous [Unknown]
